FAERS Safety Report 6386697-8 (Version None)
Quarter: 2009Q4

REPORT INFORMATION
  Report Type: 
  Country: None (occurrence: None)
  Receive Date: 20091002
  Receipt Date: 20090922
  Transmission Date: 20100525
  Serious: Yes (Other)
  Sender: FDA-Public Use
  Company Number: NL-TEVA-210139ISR

PATIENT
  Sex: Female
  Weight: 80 kg

DRUGS (3)
  1. AMLODIPINE MALEATE TABLETS,5 MG [Suspect]
     Indication: HYPERTENSION
     Dates: start: 20090804
  2. HYDROXYZINE [Concomitant]
     Dates: start: 20081205
  3. METOPROLOL SUCCINATE [Concomitant]
     Dates: start: 20081002

REACTIONS (1)
  - FAECAL INCONTINENCE [None]
